FAERS Safety Report 8205541-7 (Version None)
Quarter: 2012Q1

REPORT INFORMATION
  Report Type: 
  Country: None (occurrence: None)
  Receive Date: 20120313
  Receipt Date: 20120229
  Transmission Date: 20120608
  Serious: Yes (Other)
  Sender: FDA-Public Use
  Company Number: US-ELI_LILLY_AND_COMPANY-US201203000337

PATIENT
  Sex: Female

DRUGS (4)
  1. AMITRIPTYLINE HCL [Concomitant]
  2. SIMVASTATIN [Concomitant]
     Dosage: UNK, 3/W
  3. PROTONIX [Concomitant]
  4. CYMBALTA [Suspect]
     Indication: BACK PAIN
     Dosage: 30 MG, QD

REACTIONS (1)
  - DERMATITIS BULLOUS [None]
